FAERS Safety Report 8483880-2 (Version None)
Quarter: 2012Q2

REPORT INFORMATION
  Report Type: 
  Country: None (occurrence: None)
  Receive Date: 20120627
  Receipt Date: 20120627
  Transmission Date: 20120825
  Serious: Yes (Other)
  Sender: FDA-Public Use
  Company Number: None

PATIENT
  Age: 55 Year
  Sex: Female
  Weight: 131 kg

DRUGS (3)
  1. AMBI EVEN + CLEAR EXFOLIATING WASH [Suspect]
     Indication: SKIN EXFOLIATION
     Dosage: AM, TOPICAL
     Route: 061
     Dates: start: 20110508, end: 20110511
  2. GLYPRIDE (GLIMEPIRIDE) [Concomitant]
  3. AMBI FADE CREAM NORMAL SKIN 20Z [Suspect]
     Dosage: SMALL AMT, 1X AM, TOPICAL
     Route: 061
     Dates: start: 20110508, end: 20110511

REACTIONS (13)
  - RASH [None]
  - DYSPHAGIA [None]
  - PRURITUS [None]
  - BURNING SENSATION [None]
  - DYSPNOEA [None]
  - SEBORRHOEIC KERATOSIS [None]
  - COUGH [None]
  - RASH PAPULAR [None]
  - PIGMENTATION DISORDER [None]
  - SWELLING FACE [None]
  - PHARYNGEAL OEDEMA [None]
  - HYPERSENSITIVITY [None]
  - ERYTHEMA [None]
